FAERS Safety Report 5562703-5 (Version None)
Quarter: 2007Q4

REPORT INFORMATION
  Report Type: 
  Country: None (occurrence: None)
  Receive Date: 20071211
  Receipt Date: 20071211
  Transmission Date: 20080405
  Serious: No
  Sender: FDA-Public Use
  Company Number: None

PATIENT
  Age: 40 Year
  Sex: Female
  Weight: 54.4316 kg

DRUGS (1)
  1. BOTOX [Suspect]
     Indication: SKIN COSMETIC PROCEDURE
     Dosage: 20 UNITS
     Dates: start: 20071117, end: 20071117

REACTIONS (3)
  - ASTHENOPIA [None]
  - PHOTOPHOBIA [None]
  - VISUAL DISTURBANCE [None]
